FAERS Safety Report 13581455 (Version 1)
Quarter: 2017Q2

REPORT INFORMATION
  Report Type: Spontaneous
  Country: US (occurrence: US)
  Receive Date: 20170525
  Receipt Date: 20170525
  Transmission Date: 20170830
  Serious: Yes (Hospitalization, Other)
  Sender: FDA-Public Use
  Company Number: US-GLAXOSMITHKLINE-US2017GSK078292

PATIENT
  Age: 19 Year
  Sex: Male

DRUGS (1)
  1. BUPROPION. [Suspect]
     Active Substance: BUPROPION
     Indication: PRODUCT USED FOR UNKNOWN INDICATION
     Dosage: 150 MG

REACTIONS (6)
  - Overdose [Unknown]
  - Sinus tachycardia [Unknown]
  - Unresponsive to stimuli [Unknown]
  - Seizure [Unknown]
  - Cardiotoxicity [Unknown]
  - Urinary incontinence [Unknown]
